FAERS Safety Report 22314645 (Version 2)
Quarter: 2023Q2

REPORT INFORMATION
  Report Type: Spontaneous
  Country: US (occurrence: US)
  Receive Date: 20230512
  Receipt Date: 20230616
  Transmission Date: 20230722
  Serious: No
  Sender: FDA-Public Use
  Company Number: US-GILEAD-2023-0628102

PATIENT
  Age: 54 Year
  Sex: Male

DRUGS (1)
  1. ATRIPLA [Suspect]
     Active Substance: EFAVIRENZ\EMTRICITABINE\TENOFOVIR DISOPROXIL FUMARATE
     Indication: HIV infection
     Dosage: UNK
     Route: 065

REACTIONS (4)
  - Poor quality sleep [Recovering/Resolving]
  - Blood glucose increased [Recovering/Resolving]
  - Gastrointestinal pain [Recovering/Resolving]
  - Nausea [Recovering/Resolving]
